FAERS Safety Report 9415346 (Version 1)
Quarter: 2013Q3

REPORT INFORMATION
  Report Type: Spontaneous
  Country: US (occurrence: US)
  Receive Date: 20130723
  Receipt Date: 20130723
  Transmission Date: 20140515
  Serious: Yes (Other)
  Sender: FDA-Public Use
  Company Number: US-ASTRAZENECA-2013SE52768

PATIENT
  Age: 70 Year
  Sex: Female
  Weight: 49.9 kg

DRUGS (3)
  1. ATENOLOL [Suspect]
     Route: 065
  2. LISINOPRIL [Suspect]
     Indication: HYPERTENSION
     Route: 048
     Dates: end: 201303
  3. LISINOPRIL [Suspect]
     Indication: HYPERTENSION
     Route: 048
     Dates: start: 201303, end: 201304

REACTIONS (8)
  - Blood pressure increased [Unknown]
  - Lip swelling [Unknown]
  - Urticaria [Unknown]
  - Face oedema [Unknown]
  - Erythema [Not Recovered/Not Resolved]
  - Paraesthesia oral [Unknown]
  - Paraesthesia [Not Recovered/Not Resolved]
  - Drug ineffective [Unknown]
